FAERS Safety Report 7421917-X (Version None)
Quarter: 2011Q2

REPORT INFORMATION
  Report Type: 
  Country: None (occurrence: None)
  Receive Date: 20110418
  Receipt Date: 20110412
  Transmission Date: 20111010
  Serious: Yes (Hospitalization, Other)
  Sender: FDA-Public Use
  Company Number: CA-BAXTER-2011BH008536

PATIENT
  Sex: Male

DRUGS (2)
  1. LIDOCAINE HCL IN 5% DEXTROSE INJECTION IN PLASTIC CONTAINER [Suspect]
     Indication: PRODUCT USED FOR UNKNOWN INDICATION
     Route: 042
  2. AMIODARONE [Concomitant]
     Indication: VENTRICULAR ARRHYTHMIA
     Route: 042

REACTIONS (5)
  - CARDIAC ARREST [None]
  - MALAISE [None]
  - WRONG DRUG ADMINISTERED [None]
  - BLOOD PRESSURE DECREASED [None]
  - CONVULSION [None]
